FAERS Safety Report 18262195 (Version 3)
Quarter: 2021Q1

REPORT INFORMATION
  Report Type: Report from Study
  Country: JP (occurrence: JP)
  Receive Date: 20200914
  Receipt Date: 20210225
  Transmission Date: 20210419
  Serious: Yes (Life-Threatening, Hospitalization, Other)
  Sender: FDA-Public Use
  Company Number: JP-TEVA-2020-JP-1828609

PATIENT
  Age: 72 Year
  Sex: Female
  Weight: 53 kg

DRUGS (7)
  1. MIRAPEX [Concomitant]
     Active Substance: PRAMIPEXOLE DIHYDROCHLORIDE
  2. MENESIT [Suspect]
     Active Substance: CARBIDOPA\LEVODOPA
     Indication: PARKINSON^S DISEASE
     Dosage: 1200 MILLIGRAM DAILY; 400 MILLIGRAM, TID
     Route: 048
  3. MAGNESIUM OXIDE. [Concomitant]
     Active Substance: MAGNESIUM OXIDE
  4. RASAGILINE MESILATE [Suspect]
     Active Substance: RASAGILINE MESYLATE
     Indication: PARKINSON^S DISEASE
     Dosage: 1 MILLIGRAM DAILY;
     Route: 048
     Dates: start: 20190708, end: 20191221
  5. GASMOTIN [Concomitant]
     Active Substance: MOSAPRIDE CITRATE
  6. LEVODOPA [Concomitant]
     Active Substance: LEVODOPA
  7. YODEL [Concomitant]
     Active Substance: SENNA LEAF

REACTIONS (4)
  - Clavicle fracture [Recovering/Resolving]
  - Skin laceration [Recovered/Resolved]
  - Fall [Recovered/Resolved]
  - Orthostatic hypotension [Recovering/Resolving]

NARRATIVE: CASE EVENT DATE: 20191125
